FAERS Safety Report 13278685 (Version 1)
Quarter: 2017Q1

REPORT INFORMATION
  Report Type: Spontaneous
  Country: TN (occurrence: TN)
  Receive Date: 20170228
  Receipt Date: 20170228
  Transmission Date: 20170428
  Serious: Yes (Other)
  Sender: FDA-Public Use
  Company Number: TN-MYLANLABS-2017M1011512

PATIENT

DRUGS (2)
  1. DELAPRIL [Suspect]
     Active Substance: DELAPRIL
     Indication: HYPERTENSION
     Dosage: 30 MG
     Route: 065
     Dates: start: 2009
  2. INDAPAMIDE. [Suspect]
     Active Substance: INDAPAMIDE
     Indication: HYPERTENSION
     Dosage: 2.5MG, 1 PILL/DAY
     Route: 065
     Dates: start: 2009

REACTIONS (1)
  - Angioedema [Recovered/Resolved]

NARRATIVE: CASE EVENT DATE: 2014
